FAERS Safety Report 19141694 (Version 1)
Quarter: 2021Q2

REPORT INFORMATION
  Report Type: Spontaneous
  Country: GB (occurrence: GB)
  Receive Date: 20210415
  Receipt Date: 20210415
  Transmission Date: 20210717
  Serious: Yes (Hospitalization)
  Sender: FDA-Public Use
  Company Number: GB-MYLANLABS-2021M1022008

PATIENT
  Age: 55 Year
  Sex: Male

DRUGS (4)
  1. PRIADEL                            /00033702/ [Concomitant]
     Active Substance: LITHIUM CARBONATE
     Indication: ILL-DEFINED DISORDER
     Dosage: UNK
  2. LAMOTRIGINE. [Suspect]
     Active Substance: LAMOTRIGINE
     Indication: ILL-DEFINED DISORDER
     Dosage: 25 MG ALTERNATE DAYS
     Route: 048
     Dates: start: 20210310, end: 20210319
  3. ARIPIPRAZOL [Concomitant]
     Active Substance: ARIPIPRAZOLE
     Indication: ILL-DEFINED DISORDER
     Dosage: UNK
  4. VALPROATE [Concomitant]
     Active Substance: VALPROIC ACID
     Indication: ILL-DEFINED DISORDER
     Dosage: UNK

REACTIONS (3)
  - Blood sodium decreased [Recovering/Resolving]
  - Liver function test abnormal [Recovering/Resolving]
  - Blood creatine phosphokinase increased [Unknown]

NARRATIVE: CASE EVENT DATE: 20210318
